FAERS Safety Report 8546954-3 (Version None)
Quarter: 2012Q3

REPORT INFORMATION
  Report Type: 
  Country: None (occurrence: None)
  Receive Date: 20120727
  Receipt Date: 20120719
  Transmission Date: 20120928
  Serious: No
  Sender: FDA-Public Use
  Company Number: US-ASTRAZENECA-2011SE04118

PATIENT
  Age: 48 Year
  Sex: Female

DRUGS (2)
  1. NEXIUM [Suspect]
     Route: 048
  2. MOTRIN [Concomitant]

REACTIONS (3)
  - ULCER [None]
  - GASTROENTERITIS VIRAL [None]
  - DRUG DOSE OMISSION [None]
